FAERS Safety Report 16783238 (Version 1)
Quarter: 2019Q3

REPORT INFORMATION
  Report Type: Spontaneous
  Country: US (occurrence: US)
  Receive Date: 20190907
  Receipt Date: 20190907
  Transmission Date: 20191005
  Serious: No
  Sender: FDA-Public Use
  Company Number: US-ZYDUS-036158

PATIENT
  Age: 46 Year
  Sex: Female

DRUGS (6)
  1. MELOXICAM. [Suspect]
     Active Substance: MELOXICAM
     Indication: ARTHRALGIA
     Route: 048
     Dates: start: 20190304, end: 20190328
  2. CALCIUM/COLECALCIFEROL [Concomitant]
     Indication: OSTEOPOROSIS
     Dosage: 600 MG/200 IU
     Route: 065
  3. TRAZODONE [Concomitant]
     Active Substance: TRAZODONE HYDROCHLORIDE
     Indication: INSOMNIA
     Route: 065
  4. CLONAZEPAM. [Concomitant]
     Active Substance: CLONAZEPAM
     Indication: ANXIETY
     Route: 065
  5. VITAMINS NOS [Concomitant]
     Active Substance: VITAMINS
     Indication: VITAMIN SUPPLEMENTATION
     Route: 065
  6. ARMODAFINIL. [Concomitant]
     Active Substance: ARMODAFINIL
     Indication: NARCOLEPSY
     Route: 065

REACTIONS (1)
  - Blister [Not Recovered/Not Resolved]

NARRATIVE: CASE EVENT DATE: 20190310
